FAERS Safety Report 14797217 (Version 1)
Quarter: 2018Q2

REPORT INFORMATION
  Report Type: Spontaneous
  Country: FR (occurrence: FR)
  Receive Date: 20180423
  Receipt Date: 20180423
  Transmission Date: 20180711
  Serious: Yes (Other)
  Sender: FDA-Public Use
  Company Number: FR-MERCK KGAA-2046325

PATIENT
  Sex: Female

DRUGS (1)
  1. NOVOTHYROX [Suspect]
     Active Substance: LEVOTHYROXINE SODIUM
     Indication: PRODUCT USED FOR UNKNOWN INDICATION

REACTIONS (41)
  - Hypokinesia [None]
  - Eczema [None]
  - Pollakiuria [None]
  - Feeling abnormal [None]
  - Amnesia [None]
  - Eye disorder [None]
  - Loss of libido [None]
  - Aphasia [None]
  - Aggression [None]
  - Nausea [None]
  - Decreased appetite [None]
  - Irritability [None]
  - Disorientation [None]
  - Genital herpes [None]
  - Vertigo [None]
  - Mood swings [None]
  - Aphonia [None]
  - Myalgia [None]
  - Tachycardia [None]
  - Disturbance in attention [None]
  - Fatigue [None]
  - Migraine [None]
  - Weight decreased [None]
  - Alopecia [None]
  - Gastrooesophageal reflux disease [None]
  - Insomnia [None]
  - Pruritus [None]
  - Pain [None]
  - Muscle spasms [None]
  - Impaired driving ability [None]
  - Tendonitis [None]
  - Abdominal pain upper [None]
  - Abdominal distension [None]
  - Confusional state [None]
  - Negative thoughts [None]
  - Impaired work ability [None]
  - Blood pressure fluctuation [None]
  - Dyspnoea [None]
  - Dyspepsia [None]
  - Pain in extremity [None]
  - Loss of employment [None]
